FAERS Safety Report 8042565-7 (Version None)
Quarter: 2012Q1

REPORT INFORMATION
  Report Type: 
  Country: None (occurrence: None)
  Receive Date: 20120112
  Receipt Date: 20120110
  Transmission Date: 20120608
  Serious: Yes (Death, Hospitalization, Other)
  Sender: FDA-Public Use
  Company Number: US-PFIZER INC-2009281401

PATIENT
  Sex: Female
  Weight: 88.4 kg

DRUGS (13)
  1. SUTENT [Suspect]
     Indication: METASTATIC RENAL CELL CARCINOMA
     Dosage: 50 MG, 1X/DAY
     Route: 048
     Dates: start: 20090926, end: 20091023
  2. SUTENT [Suspect]
     Dosage: 12.5 MG WITH 25 MG
  3. HYDROCHLOROTHIAZIDE [Concomitant]
     Dosage: 25 MG, UNK
  4. SYNTHROID [Concomitant]
     Dosage: 125 MG, 1X/DAY
  5. QUINAPRIL [Concomitant]
     Dosage: 1 TABLET DAILY
  6. METOPROLOL [Concomitant]
     Dosage: 1 TABLET DAILY
  7. GLYBURIDE [Concomitant]
     Dosage: 3 MG, UNK
  8. ALLOPURINOL [Concomitant]
     Dosage: 100 MG, 2 TABLETS DAILY
  9. BENICAR [Concomitant]
     Dosage: 1 TABLET DAILY
  10. GLUCOSAMINE [Concomitant]
     Dosage: 3 TIMES DAILY
  11. SUTENT [Suspect]
     Dosage: 37.5 MG, CYCLIC 1X/DAY
     Dates: start: 20091109
  12. ACTOS [Concomitant]
     Dosage: UNK
  13. CENTRUM [Concomitant]
     Dosage: DAILY

REACTIONS (34)
  - FATIGUE [None]
  - STOMATITIS [None]
  - WEIGHT DECREASED [None]
  - METASTATIC RENAL CELL CARCINOMA [None]
  - DEATH [None]
  - BODY TEMPERATURE INCREASED [None]
  - PAIN IN EXTREMITY [None]
  - INSOMNIA [None]
  - ALOPECIA [None]
  - ANAEMIA [None]
  - LIP DRY [None]
  - HYPERKERATOSIS [None]
  - HEART VALVE INCOMPETENCE [None]
  - MALAISE [None]
  - DIARRHOEA [None]
  - RASH [None]
  - HYPOAESTHESIA [None]
  - GINGIVAL PAIN [None]
  - DYSPNOEA [None]
  - SWELLING FACE [None]
  - ASTHENIA [None]
  - EYE SWELLING [None]
  - BURNING SENSATION [None]
  - DISEASE PROGRESSION [None]
  - PNEUMONIA [None]
  - VOMITING [None]
  - NERVOUSNESS [None]
  - PAIN [None]
  - LACRIMATION INCREASED [None]
  - GASTROOESOPHAGEAL REFLUX DISEASE [None]
  - PYREXIA [None]
  - OEDEMA PERIPHERAL [None]
  - PLATELET COUNT DECREASED [None]
  - DYSGEUSIA [None]
